FAERS Safety Report 7601958-X (Version None)
Quarter: 2011Q3

REPORT INFORMATION
  Report Type: 
  Country: None (occurrence: None)
  Receive Date: 20110711
  Receipt Date: 20110705
  Transmission Date: 20111222
  Serious: Yes (Hospitalization, Congenital Anomaly, Other)
  Sender: FDA-Public Use
  Company Number: US-PFIZER INC-2010092578

PATIENT
  Sex: Male
  Weight: 3.18 kg

DRUGS (1)
  1. ZOLOFT [Suspect]
     Dosage: UNK
     Route: 064

REACTIONS (18)
  - CRYPTORCHISM [None]
  - SINUS TACHYCARDIA [None]
  - PATENT DUCTUS ARTERIOSUS [None]
  - VIRAL INFECTION [None]
  - ATRIAL SEPTAL DEFECT [None]
  - GASTROENTERITIS [None]
  - MATERNAL EXPOSURE DURING PREGNANCY [None]
  - CARDIOMEGALY [None]
  - CROUP INFECTIOUS [None]
  - RESPIRATORY DISORDER [None]
  - PREPUCE REDUNDANT [None]
  - DERMATITIS CONTACT [None]
  - CARDIAC FAILURE CONGESTIVE [None]
  - HEART DISEASE CONGENITAL [None]
  - FAILURE TO THRIVE [None]
  - TACHYPNOEA [None]
  - CARDIAC MURMUR [None]
  - ECZEMA [None]
